FAERS Safety Report 5403158-0 (Version None)
Quarter: 2007Q3

REPORT INFORMATION
  Report Type: 
  Country: None (occurrence: None)
  Receive Date: 20070801
  Receipt Date: 20070725
  Transmission Date: 20080115
  Serious: Yes (Hospitalization, Other)
  Sender: FDA-Public Use
  Company Number: GB-PFIZER INC-2007038415

PATIENT
  Age: 71 Year
  Sex: Female

DRUGS (4)
  1. LYRICA [Suspect]
     Indication: NEURALGIA
  2. SIMVASTATIN [Concomitant]
     Route: 048
  3. TOLTERODINE TARTRATE [Concomitant]
     Route: 048
  4. ZOPICLONE [Concomitant]
     Route: 048

REACTIONS (2)
  - ANGINA PECTORIS [None]
  - CHEST PAIN [None]
